FAERS Safety Report 16565626 (Version 1)
Quarter: 2019Q3

REPORT INFORMATION
  Report Type: Spontaneous
  Country: DE (occurrence: DE)
  Receive Date: 20190712
  Receipt Date: 20190712
  Transmission Date: 20191004
  Serious: Yes (Hospitalization)
  Sender: FDA-Public Use
  Company Number: DE-TEVA-2019-DE-1075510

PATIENT
  Age: 80 Year
  Sex: Male
  Weight: 87 kg

DRUGS (6)
  1. ATORVASTATIN [Suspect]
     Active Substance: ATORVASTATIN
     Dosage: 20 MG, 0-0-1, TABLETS
     Route: 048
  2. ASPIRIN. [Concomitant]
     Active Substance: ASPIRIN
     Dosage: 100 MG, 1-0-0, TABLETS
     Route: 048
  3. FELODIPIN [Concomitant]
     Active Substance: FELODIPINE
     Dosage: 1-1-0, TABLETTEN
     Route: 048
  4. OLMESARTAN/HYDROCHLOROTHIAZID [Concomitant]
     Dosage: 20 MG, 1-0-0, TABLETTEN
     Route: 048
  5. ROXITHROMYCIN [Concomitant]
     Active Substance: ROXITHROMYCIN
     Dosage: TABLETTEN
     Route: 048
  6. ATOSIL [Concomitant]
     Dosage: FANTASTIC
     Route: 048

REACTIONS (5)
  - Hiccups [Unknown]
  - Dysuria [Unknown]
  - Liver function test abnormal [Unknown]
  - Fall [Unknown]
  - Cough [Unknown]
